FAERS Safety Report 5169801-9 (Version None)
Quarter: 2006Q4

REPORT INFORMATION
  Report Type: 
  Country: None (occurrence: None)
  Receive Date: 20061212
  Receipt Date: 20061205
  Transmission Date: 20070319
  Serious: Yes (Hospitalization)
  Sender: FDA-Public Use
  Company Number: FR-AVENTIS-200614287FR

PATIENT
  Age: 60 Year
  Sex: Female

DRUGS (11)
  1. GLIMEPIRIDE [Suspect]
     Indication: DIABETES MELLITUS
     Route: 048
  2. TRIATEC                            /00885601/ [Suspect]
     Indication: CORONARY ARTERY BYPASS
     Route: 048
     Dates: start: 20020615
  3. ALLOPURINOL [Suspect]
     Indication: DRUG USE FOR UNKNOWN INDICATION
     Route: 048
     Dates: start: 20040315
  4. NITRODERM [Suspect]
     Indication: CORONARY ARTERY BYPASS
     Dosage: DOSE UNIT: MILLIGRAM PER 24 HOURS
     Route: 023
     Dates: start: 20020615, end: 20060215
  5. ZOCOR [Suspect]
     Indication: CORONARY ARTERY BYPASS
     Route: 048
     Dates: start: 20020615
  6. KARDEGIC                           /00002703/ [Suspect]
     Indication: CORONARY ARTERY BYPASS
     Route: 048
     Dates: start: 20020615
  7. UMULINE PROTAMINE ISOPHANE [Concomitant]
     Indication: DIABETES MELLITUS
  8. LEVOTHYROXINE SODIUM [Concomitant]
     Indication: DRUG USE FOR UNKNOWN INDICATION
  9. ATARAX                             /00058402/ [Concomitant]
     Indication: DRUG USE FOR UNKNOWN INDICATION
  10. LASILIX                            /00032601/ [Concomitant]
     Indication: ACUTE PULMONARY OEDEMA
     Dates: start: 20040301
  11. IMOVANE [Concomitant]
     Indication: DRUG USE FOR UNKNOWN INDICATION
     Dates: start: 20040301

REACTIONS (2)
  - DRUG ERUPTION [None]
  - LICHENOID KERATOSIS [None]
